FAERS Safety Report 6553596-8 (Version None)
Quarter: 2010Q1

REPORT INFORMATION
  Report Type: 
  Country: None (occurrence: None)
  Receive Date: 20100127
  Receipt Date: 20100118
  Transmission Date: 20100710
  Serious: Yes (Hospitalization)
  Sender: FDA-Public Use
  Company Number: BR-ASTRAZENECA-2010SE02338

PATIENT
  Age: 62 Year
  Sex: Female

DRUGS (6)
  1. CRESTOR [Suspect]
     Indication: BLOOD CHOLESTEROL INCREASED
     Route: 048
     Dates: start: 20080101
  2. ATACAND [Suspect]
     Indication: HYPERTENSION
     Route: 048
     Dates: start: 20091101
  3. ACTOS [Concomitant]
     Indication: DIABETES MELLITUS
     Route: 048
  4. JANUVIA [Concomitant]
     Indication: DIABETES MELLITUS
     Route: 048
  5. GLIFAGE [Concomitant]
     Indication: DIABETES MELLITUS
     Route: 048
  6. MANIVASC [Concomitant]
     Indication: HYPERTENSION
     Route: 048

REACTIONS (12)
  - ANAEMIA [None]
  - DEPRESSED MOOD [None]
  - DEPRESSION [None]
  - DRUG DOSE OMISSION [None]
  - GAIT DISTURBANCE [None]
  - HYPOAESTHESIA [None]
  - HYPOTENSION [None]
  - JOINT LOCK [None]
  - LIMB DISCOMFORT [None]
  - MUSCLE TWITCHING [None]
  - OEDEMA PERIPHERAL [None]
  - RENAL CANCER [None]
